FAERS Safety Report 11929277 (Version 5)
Quarter: 2017Q3

REPORT INFORMATION
  Report Type: Report from Study
  Country: MX (occurrence: MX)
  Receive Date: 20160120
  Receipt Date: 20170821
  Transmission Date: 20171127
  Serious: Yes (Other)
  Sender: FDA-Public Use
  Company Number: MX-UCBSA-2016001746

PATIENT
  Age: 8 Year
  Sex: Male
  Weight: 32.6 kg

DRUGS (6)
  1. LEVETIRACETAM. [Concomitant]
     Active Substance: LEVETIRACETAM
     Indication: EPILEPSY
     Dosage: 1 G, 2X/DAY (BID)
     Route: 048
     Dates: start: 20140902
  2. CITALOPRAM [Concomitant]
     Active Substance: CITALOPRAM HYDROBROMIDE
     Dosage: 20 MG, ONCE DAILY (QD)
     Route: 048
     Dates: start: 20160118
  3. LACOSAMIDE EP [Suspect]
     Active Substance: LACOSAMIDE
     Indication: EPILEPSY
     Dosage: 105 MG, 2X/DAY (BID)
     Route: 048
     Dates: start: 20151228, end: 20160104
  4. LACOSAMIDE EP [Suspect]
     Active Substance: LACOSAMIDE
     Dosage: 140 MG, 2X/DAY (BID)
     Route: 048
     Dates: start: 20160105
  5. CITALOPRAM [Concomitant]
     Active Substance: CITALOPRAM HYDROBROMIDE
     Indication: AGGRESSION
     Dosage: 10 MG, ONCE DAILY (QD)
     Route: 048
     Dates: start: 201507, end: 20160117
  6. VALPROATE MAGNESIUM [Concomitant]
     Active Substance: VALPROATE MAGNESIUM
     Indication: EPILEPSY
     Dosage: 400 MG, 3X/DAY (Q8H)
     Route: 048
     Dates: start: 20140815

REACTIONS (1)
  - Bradycardia [Recovered/Resolved]

NARRATIVE: CASE EVENT DATE: 20160113
